FAERS Safety Report 5359020-5 (Version None)
Quarter: 2007Q2

REPORT INFORMATION
  Report Type: 
  Country: None (occurrence: None)
  Receive Date: 20070615
  Receipt Date: 20070606
  Transmission Date: 20071010
  Serious: Yes (Hospitalization)
  Sender: FDA-Public Use
  Company Number: CM-MERCK-0706USA00953

PATIENT
  Age: 20 Year
  Sex: Male

DRUGS (1)
  1. MECTIZAN [Suspect]
     Indication: FILARIASIS
     Route: 048
     Dates: start: 20070123

REACTIONS (5)
  - ASTHENIA [None]
  - BACK PAIN [None]
  - DIARRHOEA [None]
  - MYALGIA [None]
  - PAIN [None]
